FAERS Safety Report 9904821 (Version 2)
Quarter: 2014Q1

REPORT INFORMATION
  Report Type: Spontaneous
  Country: CA (occurrence: None)
  Receive Date: 20140211
  Receipt Date: 20140218
  Transmission Date: 20141002
  Serious: Yes (Other)
  Sender: FDA-Public Use
  Company Number: CA-014614

PATIENT
  Age: 52 Year
  Sex: Male

DRUGS (2)
  1. FIRMAGON [Suspect]
     Route: 058
     Dates: start: 20140120, end: 20140120
  2. RANITIDINE [Concomitant]

REACTIONS (2)
  - Abdominal pain [None]
  - Insomnia [None]
